FAERS Safety Report 8044586-7 (Version None)
Quarter: 2012Q1

REPORT INFORMATION
  Report Type: 
  Country: None (occurrence: None)
  Receive Date: 20120113
  Receipt Date: 20120113
  Transmission Date: 20120608
  Serious: No
  Sender: FDA-Public Use
  Company Number: None

PATIENT
  Sex: Female
  Weight: 484.43 kg

DRUGS (1)
  1. ORTHO EVRA [Suspect]
     Indication: MENORRHAGIA
     Dosage: 150MCG-20MCG
     Route: 062
     Dates: start: 20120102, end: 20120105

REACTIONS (3)
  - PRODUCT ADHESION ISSUE [None]
  - ERYTHEMA [None]
  - BLISTER [None]
